FAERS Safety Report 11809147 (Version 4)
Quarter: 2016Q1

REPORT INFORMATION
  Report Type: Spontaneous
  Country: PR (occurrence: PR)
  Receive Date: 20151207
  Receipt Date: 20160127
  Transmission Date: 20160525
  Serious: Yes (Death, Hospitalization)
  Sender: FDA-Public Use
  Company Number: PR-UNITED THERAPEUTICS-UNT-2015-015259

PATIENT
  Age: 72 Year
  Sex: Female

DRUGS (3)
  1. ORENITRAM [Suspect]
     Active Substance: TREPROSTINIL
     Indication: PULMONARY HYPERTENSION
     Dosage: 0.125 MG, BID
     Route: 048
     Dates: start: 20151012
  2. ORENITRAM [Suspect]
     Active Substance: TREPROSTINIL
     Dosage: 1 MG, UNK
     Route: 048
     Dates: end: 20151002
  3. AMBRISENTAN [Suspect]
     Active Substance: AMBRISENTAN
     Indication: PULMONARY HYPERTENSION
     Dosage: 10 MG, QD
     Route: 065
     Dates: start: 20130524, end: 20151209

REACTIONS (2)
  - Pneumonia [Unknown]
  - Pulmonary hypertension [Fatal]

NARRATIVE: CASE EVENT DATE: 20151122
